FAERS Safety Report 16894076 (Version 1)
Quarter: 2019Q4

REPORT INFORMATION
  Report Type: Spontaneous
  Country: US (occurrence: US)
  Receive Date: 20191008
  Receipt Date: 20191008
  Transmission Date: 20200122
  Serious: Yes (Other)
  Sender: FDA-Public Use
  Company Number: US-FRESENIUS KABI-FK201910895

PATIENT
  Sex: Female

DRUGS (2)
  1. TERBUTALINE INJECTION (MANUFACTURER UNKNOWN) [Suspect]
     Active Substance: TERBUTALINE SULFATE
     Indication: TOCOLYSIS
     Route: 065
  2. NIFEDIPINE. [Suspect]
     Active Substance: NIFEDIPINE
     Indication: BLOOD PRESSURE MANAGEMENT
     Route: 065

REACTIONS (4)
  - Off label use [Unknown]
  - Haemorrhage [Unknown]
  - Premature separation of placenta [Unknown]
  - Foetal death [Unknown]
